FAERS Safety Report 25179017 (Version 2)
Quarter: 2025Q2

REPORT INFORMATION
  Report Type: Spontaneous
  Country: US (occurrence: US)
  Receive Date: 20250409
  Receipt Date: 20250415
  Transmission Date: 20250717
  Serious: No
  Sender: SANOFI AVENTIS
  Company Number: US-SA-2025SA101207

PATIENT
  Age: 34 Year
  Sex: Female

DRUGS (1)
  1. DUPIXENT [Suspect]
     Active Substance: DUPILUMAB
     Indication: Dermatitis atopic
     Dosage: 300 MG, QOW
     Route: 058

REACTIONS (13)
  - Blister [Recovering/Resolving]
  - Haemorrhage [Recovering/Resolving]
  - Skin fissures [Recovering/Resolving]
  - Hyperhidrosis [Unknown]
  - Dry skin [Recovering/Resolving]
  - Skin weeping [Recovering/Resolving]
  - Feeling hot [Unknown]
  - Peripheral swelling [Not Recovered/Not Resolved]
  - Erythema [Recovering/Resolving]
  - Skin exfoliation [Recovering/Resolving]
  - Pruritus [Recovering/Resolving]
  - Arthralgia [Recovered/Resolved]
  - Inappropriate schedule of product administration [Unknown]
